FAERS Safety Report 4524561-7 (Version None)
Quarter: 2004Q4

REPORT INFORMATION
  Report Type: 
  Country: None (occurrence: None)
  Receive Date: 20041117
  Receipt Date: 20040422
  Transmission Date: 20050328
  Serious: Yes (Hospitalization)
  Sender: FDA-Public Use
  Company Number: US-JNJFOC-20040405648

PATIENT
  Age: 88 Year
  Sex: Male

DRUGS (1)
  1. LEVAQUIN [Suspect]
     Indication: PNEUMONIA
     Dates: start: 20031221, end: 20031224

REACTIONS (3)
  - PATHOGEN RESISTANCE [None]
  - PNEUMONIA [None]
  - SEPSIS [None]
